FAERS Safety Report 5646442-8 (Version None)
Quarter: 2008Q1

REPORT INFORMATION
  Report Type: 
  Country: None (occurrence: None)
  Receive Date: 20080228
  Receipt Date: 20080228
  Transmission Date: 20080703
  Serious: Yes (Hospitalization)
  Sender: FDA-Public Use
  Company Number: None

PATIENT
  Sex: Male
  Weight: 86.1834 kg

DRUGS (15)
  1. MOTRIN [Suspect]
     Indication: ANALGESIC INTERVENTION SUPPORTIVE THERAPY
     Dosage: PO
     Route: 048
  2. MOTRIN [Suspect]
     Indication: RHEUMATOID ARTHRITIS
     Dosage: PO
     Route: 048
  3. LISINOPRIL [Suspect]
     Indication: HYPERTENSION
     Dosage: 10 MG PO QD PRIOR TO ADMISSION
     Route: 048
  4. TOPROL-XL [Concomitant]
  5. GLIMEPIRIDE [Concomitant]
  6. AVANDAMET [Concomitant]
  7. LESCOL XL [Concomitant]
  8. PROVIGIL [Concomitant]
  9. VIT D [Concomitant]
  10. CALCIUM [Concomitant]
  11. ASPIRIN [Concomitant]
  12. PLAVIX [Concomitant]
  13. SENOKOT [Concomitant]
  14. PREDNISONE TAB [Concomitant]
  15. FORTICAL [Concomitant]

REACTIONS (5)
  - BACK PAIN [None]
  - CONSTIPATION [None]
  - RENAL COLIC [None]
  - RENAL FAILURE ACUTE [None]
  - URINARY RETENTION [None]
